FAERS Safety Report 21179896 (Version 5)
Quarter: 2023Q1

REPORT INFORMATION
  Report Type: Spontaneous
  Country: US (occurrence: US)
  Receive Date: 20220805
  Receipt Date: 20230207
  Transmission Date: 20230417
  Serious: Yes (Hospitalization, Other)
  Sender: FDA-Public Use
  Company Number: US-PFIZER INC-202201029892

PATIENT
  Age: 66 Year
  Sex: Male
  Weight: 58.966 kg

DRUGS (1)
  1. ACETYLCYSTEINE [Suspect]
     Active Substance: ACETYLCYSTEINE
     Indication: Secretion discharge
     Dosage: 6 ML (VIA NEBULIZER) IN THE MORNING OR AS NEEDED
     Dates: start: 2003

REACTIONS (9)
  - Mycobacterium fortuitum infection [Unknown]
  - Traumatic lung injury [Unknown]
  - Pneumonia [Unknown]
  - Laryngectomy [Unknown]
  - Lung lobectomy [Unknown]
  - Nervous system disorder [Unknown]
  - Respiratory disorder [Unknown]
  - Expired product administered [Unknown]
  - Intentional product use issue [Unknown]

NARRATIVE: CASE EVENT DATE: 20200101
